FAERS Safety Report 15559486 (Version 2)
Quarter: 2018Q4

REPORT INFORMATION
  Report Type: Spontaneous
  Country: JP (occurrence: JP)
  Receive Date: 20181029
  Receipt Date: 20181210
  Transmission Date: 20190205
  Serious: Yes (Other)
  Sender: FDA-Public Use
  Company Number: JP-ROCHE-2206954

PATIENT
  Age: 71 Year
  Sex: Female

DRUGS (2)
  1. METHYCOBAL [Concomitant]
     Active Substance: METHYLCOBALAMIN
     Dosage: 500 MCG, 8HRS
     Route: 065
     Dates: start: 20180424
  2. BONVIVA [Suspect]
     Active Substance: IBANDRONATE SODIUM
     Indication: OSTEOPOROSIS
     Route: 042
     Dates: start: 20181011

REACTIONS (9)
  - Feeling hot [Unknown]
  - Vascular pain [Not Recovered/Not Resolved]
  - Paraesthesia [Unknown]
  - Hyperhidrosis [Unknown]
  - Parosmia [Unknown]
  - Coating in mouth [Unknown]
  - Rash [Unknown]
  - Back pain [Recovering/Resolving]
  - Tongue eruption [Unknown]

NARRATIVE: CASE EVENT DATE: 20181011
